FAERS Safety Report 17507593 (Version 1)
Quarter: 2020Q1

REPORT INFORMATION
  Report Type: Spontaneous
  Country: US (occurrence: US)
  Receive Date: 20200225
  Receipt Date: 20200225
  Transmission Date: 20200409
  Serious: Yes (Other)
  Sender: FDA-Public Use
  Company Number: None

PATIENT
  Age: 50 Year
  Sex: Female
  Weight: 82.1 kg

DRUGS (1)
  1. ESTRADIOL PATCH 0.05MG 240 [Suspect]
     Active Substance: ESTRADIOL
     Route: 061

REACTIONS (4)
  - Skin irritation [None]
  - Hypersensitivity [None]
  - Application site hypersensitivity [None]
  - Product adhesion issue [None]
